FAERS Safety Report 10244328 (Version 1)
Quarter: 2014Q2

REPORT INFORMATION
  Report Type: Spontaneous
  Country: JP (occurrence: JP)
  Receive Date: 20140618
  Receipt Date: 20140618
  Transmission Date: 20141212
  Serious: Yes (Death, Hospitalization)
  Sender: FDA-Public Use
  Company Number: JP-ACTELION-A-CH2014-100388

PATIENT
  Age: 24 Year
  Sex: Male
  Weight: 39 kg

DRUGS (3)
  1. TRACLEER [Suspect]
     Indication: PULMONARY HYPERTENSION
     Dosage: 62.5 MG, BID
     Route: 048
     Dates: end: 20130928
  2. EPOPROSTENOL [Concomitant]
     Dosage: UNK
     Dates: start: 20130928, end: 20131121
  3. NAFAMOSTAT MESILATE [Concomitant]

REACTIONS (1)
  - Pulmonary hypertension [Fatal]
